FAERS Safety Report 16155705 (Version 1)
Quarter: 2019Q2

REPORT INFORMATION
  Report Type: Report from Study
  Country: US (occurrence: US)
  Receive Date: 20190404
  Receipt Date: 20190404
  Transmission Date: 20190711
  Serious: Yes (Other)
  Sender: FDA-Public Use
  Company Number: US-UCBSA-2018054536

PATIENT
  Sex: Female
  Weight: 82 kg

DRUGS (4)
  1. TRILEPTAL [Concomitant]
     Active Substance: OXCARBAZEPINE
     Indication: EPILEPSY
     Dosage: UNK
  2. LEVETIRACETAM. [Suspect]
     Active Substance: LEVETIRACETAM
     Indication: EPILEPSY
     Dosage: 3000MG
  3. TOPAMAX [Concomitant]
     Active Substance: TOPIRAMATE
     Indication: EPILEPSY
     Dosage: UNK
  4. ZOLOFT [Concomitant]
     Active Substance: SERTRALINE HYDROCHLORIDE
     Indication: EPILEPSY

REACTIONS (8)
  - Abdominal pain [Unknown]
  - Pruritus [Unknown]
  - Anger [Unknown]
  - Gallbladder enlargement [Unknown]
  - Urinary tract infection [Unknown]
  - Chest pain [Unknown]
  - Hepatic enzyme increased [Unknown]
  - Temporal lobe epilepsy [Unknown]
